FAERS Safety Report 5076607-8 (Version None)
Quarter: 2006Q3

REPORT INFORMATION
  Report Type: 
  Country: None (occurrence: None)
  Receive Date: 20060807
  Receipt Date: 20060727
  Transmission Date: 20061208
  Serious: Yes (Other)
  Sender: FDA-Public Use
  Company Number: 2006079438

PATIENT
  Age: 92 Year
  Sex: Female

DRUGS (3)
  1. HALCION [Suspect]
     Dosage: ORAL
     Route: 048
  2. DEPAS (ETIZOLAM) [Concomitant]
  3. DEPROMEL (FLUVOXAMINE MALEATE) [Concomitant]

REACTIONS (4)
  - BLOOD CHLORIDE DECREASED [None]
  - BLOOD SODIUM DECREASED [None]
  - IATROGENIC INJURY [None]
  - OVERDOSE [None]
